FAERS Safety Report 16977297 (Version 1)
Quarter: 2019Q4

REPORT INFORMATION
  Report Type: Spontaneous
  Country: US (occurrence: US)
  Receive Date: 20191031
  Receipt Date: 20191031
  Transmission Date: 20200122
  Serious: Yes (Other)
  Sender: FDA-Public Use
  Company Number: US-LUPIN PHARMACEUTICALS INC.-2019-05027

PATIENT
  Age: 52 Year
  Sex: Male

DRUGS (5)
  1. FLUCYTOSINE. [Suspect]
     Active Substance: FLUCYTOSINE
     Dosage: 2500 MILLIGRAM, QID
     Route: 065
  2. DARUNAVIR [Concomitant]
     Active Substance: DARUNAVIR
     Indication: HIV INFECTION
     Dosage: 800 MILLIGRAM, QD, FOR THE PAST 3 YEARS
     Route: 065
  3. EMTRICITABINE;TENOFOVIR [Concomitant]
     Active Substance: EMTRICITABINE\TENOFOVIR
     Indication: HIV INFECTION
     Dosage: 200-300 MG, QD, FOR THE PAST 3 YEARS
     Route: 065
  4. FLUCYTOSINE. [Suspect]
     Active Substance: FLUCYTOSINE
     Indication: MENINGITIS CRYPTOCOCCAL
     Dosage: UNK
     Route: 065
  5. AMPHOTERICIN [Concomitant]
     Active Substance: AMPHOTERICIN B
     Indication: MENINGITIS CRYPTOCOCCAL
     Dosage: UNK
     Route: 065

REACTIONS (1)
  - Colitis [Recovered/Resolved]
